FAERS Safety Report 8264875-0 (Version None)
Quarter: 2012Q2

REPORT INFORMATION
  Report Type: 
  Country: None (occurrence: None)
  Receive Date: 20120406
  Receipt Date: 20120326
  Transmission Date: 20120825
  Serious: No
  Sender: FDA-Public Use
  Company Number: US-ELI_LILLY_AND_COMPANY-US201203008540

PATIENT
  Sex: Female

DRUGS (3)
  1. ZOCOR [Concomitant]
     Indication: BLOOD CHOLESTEROL
     Dosage: UNK, UNKNOWN
  2. CYMBALTA [Suspect]
     Dosage: 60 MG, UNKNOWN
  3. CYMBALTA [Suspect]
     Dosage: 30 MG, UNKNOWN

REACTIONS (1)
  - HEPATIC ENZYME INCREASED [None]
